FAERS Safety Report 24849703 (Version 2)
Quarter: 2025Q1

REPORT INFORMATION
  Report Type: Report from Study
  Country: US (occurrence: US)
  Receive Date: 20250116
  Receipt Date: 20250131
  Transmission Date: 20250409
  Serious: No
  Sender: Day One Biopharmaceuticals
  Company Number: US-Day One Biopharmaceuticals Inc.-2025US000061

PATIENT

DRUGS (2)
  1. OJEMDA [Suspect]
     Active Substance: TOVORAFENIB
     Indication: Brain neoplasm malignant
     Route: 065
     Dates: start: 20250112
  2. OJEMDA [Suspect]
     Active Substance: TOVORAFENIB
     Route: 065
     Dates: start: 20250113

REACTIONS (1)
  - Accidental underdose [Unknown]

NARRATIVE: CASE EVENT DATE: 20250112
